FAERS Safety Report 20676341 (Version 3)
Quarter: 2022Q3

REPORT INFORMATION
  Report Type: Report from Study
  Country: GB (occurrence: None)
  Receive Date: 20220405
  Receipt Date: 20220715
  Transmission Date: 20221027
  Serious: Yes (Hospitalization)
  Sender: FDA-Public Use
  Company Number: GB-ROCHE-2969192

PATIENT
  Age: 75 Year
  Sex: Female
  Weight: 60.65 kg

DRUGS (25)
  1. ATEZOLIZUMAB [Suspect]
     Active Substance: ATEZOLIZUMAB
     Indication: Non-small cell lung cancer
     Dosage: ON 19/NOV/2021, SHE RECEIVED MOST RECENT DOSE OF PEMBROLIZUMAB PRIOR TO SAE
     Route: 041
     Dates: start: 20211029
  2. ATEZOLIZUMAB [Suspect]
     Active Substance: ATEZOLIZUMAB
     Indication: Non-small cell lung cancer
     Dosage: ON 19/NOV/2021, SHE RECEIVED MOST RECENT DOSE OF PEMBROLIZUMAB PRIOR TO SAE
     Route: 041
     Dates: start: 20211029
  3. CARBOPLATIN [Suspect]
     Active Substance: CARBOPLATIN
     Indication: Non-small cell lung cancer
     Dosage: ON 19/NOV/2021, SHE RECEIVED MOST RECENT DOSE OF CARBOPLATIN  PRIOR TO SAE
     Route: 042
     Dates: start: 20211029
  4. PEMETREXED [Suspect]
     Active Substance: PEMETREXED
     Indication: Non-small cell lung cancer
     Dosage: ON 19/NOV/2021, SHE RECEIVED MOST RECENT DOSE OF PEMETREXED PRIOR TO SAE
     Route: 042
     Dates: start: 20211029
  5. TIRAGOLUMAB [Suspect]
     Active Substance: TIRAGOLUMAB
     Indication: Non-small cell lung cancer
     Dosage: ON 19/NOV/2021, SHE RECEIVED MOST RECENT DOSE OF TIRAGOLUMAB PRIOR TO SAE
     Route: 042
     Dates: start: 20211029
  6. ACIDEX ADVANCE [Concomitant]
     Indication: Gastrooesophageal reflux disease
     Route: 048
  7. ATORVASTATIN [Concomitant]
     Active Substance: ATORVASTATIN
     Indication: Diabetes mellitus
     Route: 048
  8. OMEPRAZOLE [Concomitant]
     Active Substance: OMEPRAZOLE
     Indication: Gastrooesophageal reflux disease
     Route: 048
  9. METFORMIN HYDROCHLORIDE [Concomitant]
     Active Substance: METFORMIN HYDROCHLORIDE
     Indication: Diabetes mellitus
     Route: 048
  10. LOPERAMIDE [Concomitant]
     Active Substance: LOPERAMIDE
     Indication: Diarrhoea
     Route: 048
     Dates: start: 20211101, end: 20211107
  11. LOPERAMIDE [Concomitant]
     Active Substance: LOPERAMIDE
     Route: 048
     Dates: start: 20211108
  12. ACETAMINOPHEN [Concomitant]
     Active Substance: ACETAMINOPHEN
     Indication: Pain in extremity
     Route: 048
  13. FLUCONAZOLE [Concomitant]
     Active Substance: FLUCONAZOLE
     Indication: Oral candidiasis
     Route: 048
     Dates: start: 20211116, end: 20211125
  14. BISOPROLOL [Concomitant]
     Active Substance: BISOPROLOL
     Indication: Atrial fibrillation
     Route: 048
     Dates: start: 20211115
  15. SODIUM PHOSPHATE, DIBASIC\SODIUM PHOSPHATE, MONOBASIC [Concomitant]
     Active Substance: SODIUM PHOSPHATE, DIBASIC\SODIUM PHOSPHATE, MONOBASIC
     Indication: Constipation
     Dosage: 1
     Route: 054
     Dates: start: 20211201, end: 20211201
  16. BENZYDAMINE [Concomitant]
     Active Substance: BENZYDAMINE
     Indication: Oral candidiasis
     Route: 061
     Dates: start: 20211103, end: 20211116
  17. DIGOXIN [Concomitant]
     Active Substance: DIGOXIN
     Route: 048
     Dates: start: 20211006
  18. FILGRASTIM [Concomitant]
     Active Substance: FILGRASTIM
     Indication: Prophylaxis
     Dosage: 30
     Route: 058
     Dates: start: 20211130, end: 20211202
  19. NEOMYCIN SULFATE [Concomitant]
     Active Substance: NEOMYCIN SULFATE
     Indication: Oral candidiasis
     Route: 061
     Dates: start: 20211129, end: 20211202
  20. ONDANSETRON [Concomitant]
     Active Substance: ONDANSETRON
     Indication: Oral candidiasis
     Route: 042
     Dates: start: 20211125, end: 20211125
  21. RIVAROXABAN [Concomitant]
     Active Substance: RIVAROXABAN
     Indication: Atrial fibrillation
     Route: 048
     Dates: start: 20211105
  22. FAMOTIDINE [Concomitant]
     Active Substance: FAMOTIDINE
     Indication: Gastrooesophageal reflux disease
     Route: 048
     Dates: start: 20211125, end: 20211202
  23. SODIUM CHLORIDE [Concomitant]
     Active Substance: SODIUM CHLORIDE
     Route: 042
     Dates: start: 20220614, end: 20220615
  24. SODIUM CHLORIDE [Concomitant]
     Active Substance: SODIUM CHLORIDE
     Route: 042
     Dates: start: 20220615, end: 20220616
  25. CALCIUM CHLORIDE\POTASSIUM CHLORIDE\SODIUM CHLORIDE\SODIUM LACTATE [Concomitant]
     Active Substance: CALCIUM CHLORIDE\POTASSIUM CHLORIDE\SODIUM CHLORIDE\SODIUM LACTATE
     Indication: Electrolyte imbalance
     Route: 042
     Dates: end: 20220615

REACTIONS (2)
  - Diarrhoea [Recovered/Resolved]
  - Diarrhoea [Recovered/Resolved]

NARRATIVE: CASE EVENT DATE: 20211124
